FAERS Safety Report 5880415-5 (Version None)
Quarter: 2008Q3

REPORT INFORMATION
  Report Type: 
  Country: None (occurrence: None)
  Receive Date: 20080912
  Receipt Date: 20080908
  Transmission Date: 20090109
  Serious: Yes (Other)
  Sender: FDA-Public Use
  Company Number: AU-PFIZER INC-2008075155

PATIENT
  Age: 68 Year
  Sex: Female

DRUGS (3)
  1. LIPITOR [Suspect]
     Route: 048
  2. PREDNISOLONE [Concomitant]
  3. ANALGESICS [Concomitant]

REACTIONS (5)
  - DIVERTICULITIS [None]
  - ILL-DEFINED DISORDER [None]
  - MUSCLE ATROPHY [None]
  - OEDEMA PERIPHERAL [None]
  - PAIN [None]
